FAERS Safety Report 5058416-9 (Version None)
Quarter: 2006Q2

REPORT INFORMATION
  Report Type: 
  Country: None (occurrence: None)
  Receive Date: 20060626
  Receipt Date: 20041019
  Transmission Date: 20061013
  Serious: Yes (Other)
  Sender: FDA-Public Use
  Company Number: 25470

PATIENT
  Sex: Female

DRUGS (1)
  1. HIPREX [Suspect]
     Indication: URINARY TRACT INFECTION
     Dosage: 2 GM (1 GM, 2 IN 1 DAY(S)), ORAL
     Route: 048

REACTIONS (1)
  - OESOPHAGITIS [None]
